FAERS Safety Report 21841417 (Version 1)
Quarter: 2023Q1

REPORT INFORMATION
  Report Type: Spontaneous
  Country: US (occurrence: None)
  Receive Date: 20230107
  Receipt Date: 20230107
  Transmission Date: 20230417
  Serious: Yes (Hospitalization)
  Sender: FDA-Public Use
  Company Number: None

PATIENT
  Age: 70 Year
  Sex: Male
  Weight: 85.73 kg

DRUGS (1)
  1. CEFEPIME HYDROCHLORIDE [Suspect]
     Active Substance: CEFEPIME HYDROCHLORIDE
     Indication: Pneumonia
     Dosage: 1 GM HS IV?
     Route: 042
     Dates: start: 20220504, end: 20220510

REACTIONS (3)
  - Muscle twitching [None]
  - Delirium [None]
  - Aphasia [None]

NARRATIVE: CASE EVENT DATE: 20220512
